FAERS Safety Report 19166091 (Version 1)
Quarter: 2021Q2

REPORT INFORMATION
  Report Type: Report from Study
  Country: US (occurrence: US)
  Receive Date: 20210421
  Receipt Date: 20210421
  Transmission Date: 20210717
  Serious: Yes (Death, Other)
  Sender: FDA-Public Use
  Company Number: US-TAKEDA-US202031407

PATIENT
  Sex: Female
  Weight: 54.42 kg

DRUGS (11)
  1. CELEXA [CELECOXIB] [Concomitant]
     Active Substance: CELECOXIB
  2. VENTOLIN [Concomitant]
     Active Substance: ALBUTEROL SULFATE
  3. ATENOLOL. [Concomitant]
     Active Substance: ATENOLOL
  4. OXYCODONE?ACET [Concomitant]
     Active Substance: ACETAMINOPHEN\OXYCODONE HYDROCHLORIDE
  5. OXYCONTIN [Concomitant]
     Active Substance: OXYCODONE HYDROCHLORIDE
  6. MARIJUANA [Concomitant]
     Active Substance: CANNABIS SATIVA SUBSP. INDICA TOP
  7. CUVITRU [Suspect]
     Active Substance: HUMAN IMMUNOGLOBULIN G
     Indication: IMMUNODEFICIENCY COMMON VARIABLE
     Dosage: 9 GRAM, 1/WEEK
     Route: 058
     Dates: start: 20171128
  8. EPINEPHRINE ASCORBATE [Concomitant]
  9. ISOVUE [Concomitant]
     Active Substance: IOPAMIDOL
  10. CLONIDINE. [Concomitant]
     Active Substance: CLONIDINE
  11. OXYGEN. [Concomitant]
     Active Substance: OXYGEN

REACTIONS (2)
  - Neoplasm malignant [Unknown]
  - Death [Fatal]
